FAERS Safety Report 19482842 (Version 1)
Quarter: 2021Q3

REPORT INFORMATION
  Report Type: Spontaneous
  Country: US (occurrence: US)
  Receive Date: 20210701
  Receipt Date: 20210701
  Transmission Date: 20211014
  Serious: No
  Sender: FDA-Public Use
  Company Number: US-DRREDDYS-SPO/USA/21/0136990

PATIENT
  Age: 23 Year
  Sex: Female

DRUGS (1)
  1. ZENATANE [Suspect]
     Active Substance: ISOTRETINOIN
     Indication: PRODUCT USED FOR UNKNOWN INDICATION
     Dosage: RMA ISSUE DATE: 28/MAY/2021 12:00:00 AM

REACTIONS (5)
  - Dry skin [Unknown]
  - Abdominal discomfort [Unknown]
  - Lip dry [Unknown]
  - Decreased appetite [Unknown]
  - Dry eye [Unknown]
